FAERS Safety Report 7398823-2 (Version None)
Quarter: 2011Q2

REPORT INFORMATION
  Report Type: 
  Country: None (occurrence: None)
  Receive Date: 20110407
  Receipt Date: 20110407
  Transmission Date: 20111010
  Serious: Yes (Life-Threatening, Hospitalization, Disabling)
  Sender: FDA-Public Use
  Company Number: None

PATIENT
  Age: 59 Year
  Sex: Male
  Weight: 102.9665 kg

DRUGS (1)
  1. TPN ELECTROLYTES IN PLASTIC CONTAINER [Suspect]
     Indication: NUTRITIONAL SUPPORT
     Dates: start: 20110303, end: 20110311

REACTIONS (3)
  - SERRATIA INFECTION [None]
  - CATHETER SITE INFECTION [None]
  - BACTERAEMIA [None]
